FAERS Safety Report 9813772 (Version 1)
Quarter: 2014Q1

REPORT INFORMATION
  Report Type: Spontaneous
  Country: US (occurrence: US)
  Receive Date: 20140113
  Receipt Date: 20140113
  Transmission Date: 20141002
  Serious: Yes (Death, Life-Threatening)
  Sender: FDA-Public Use
  Company Number: US-PFIZER INC-2014006216

PATIENT
  Age: 39 Year
  Sex: Female

DRUGS (1)
  1. VERAPAMIL HCL [Suspect]
     Dosage: 90 TABLETS OF VERAPAMIL 240 MG
     Route: 048

REACTIONS (7)
  - Completed suicide [Fatal]
  - Overdose [Fatal]
  - Respiratory failure [Fatal]
  - Atrioventricular block [Fatal]
  - Unresponsive to stimuli [Unknown]
  - Bradycardia [Unknown]
  - Hypotension [Unknown]
